FAERS Safety Report 5106348-X (Version None)
Quarter: 2006Q3

REPORT INFORMATION
  Report Type: 
  Country: None (occurrence: None)
  Receive Date: 20060731
  Receipt Date: 20060427
  Transmission Date: 20061208
  Serious: Yes (Other)
  Sender: FDA-Public Use
  Company Number: US-JNJFOC-20060500179

PATIENT
  Age: 32 Year
  Sex: Female
  Weight: 114.76 kg

DRUGS (1)
  1. RISPERDAL [Suspect]
     Indication: DEPRESSION
     Dosage: 1.5 MG, IN 1 DAY, ORAL
     Route: 048
     Dates: start: 20060201

REACTIONS (2)
  - ALOPECIA [None]
  - WEIGHT INCREASED [None]
